FAERS Safety Report 14762461 (Version 1)
Quarter: 2018Q2

REPORT INFORMATION
  Report Type: Report from Study
  Country: None (occurrence: US)
  Receive Date: 20180416
  Receipt Date: 20180416
  Transmission Date: 20180711
  Serious: Yes (Other)
  Sender: FDA-Public Use
  Company Number: US-ABBVIE-18K-163-2321618-00

PATIENT
  Age: 15 Year
  Sex: Female

DRUGS (1)
  1. HUMIRA [Suspect]
     Active Substance: ADALIMUMAB
     Indication: JUVENILE IDIOPATHIC ARTHRITIS
     Route: 058

REACTIONS (5)
  - Deafness transitory [Unknown]
  - Injection site vesicles [Recovered/Resolved]
  - Flushing [Recovered/Resolved]
  - Pallor [Unknown]
  - Vision blurred [Unknown]

NARRATIVE: CASE EVENT DATE: 20180409
